FAERS Safety Report 6067997-8 (Version None)
Quarter: 2009Q1

REPORT INFORMATION
  Report Type: 
  Country: None (occurrence: None)
  Receive Date: 20090206
  Receipt Date: 20090127
  Transmission Date: 20090719
  Serious: Yes (Other)
  Sender: FDA-Public Use
  Company Number: US-JNJFOC-20090107286

PATIENT
  Sex: Male
  Weight: 77.11 kg

DRUGS (6)
  1. DURAGESIC-100 [Suspect]
     Indication: PAIN
     Dosage: TWO 100UG/HR PATCHES
     Route: 062
  2. NUBAIN [Suspect]
     Indication: PAIN
     Route: 065
  3. OXYCODONE HCL [Concomitant]
     Indication: BREAKTHROUGH PAIN
     Dosage: TWO THREE TIMES A DAY
     Route: 048
  4. ALPRAZOLAM [Concomitant]
     Indication: ANXIETY
     Route: 048
  5. ALPRAZOLAM [Concomitant]
     Indication: SLEEP DISORDER
     Dosage: ONE TABLET 4TIMES IN 2DAYS
     Route: 048
  6. DIAZEPAM [Concomitant]
     Indication: MUSCLE SPASMS
     Dosage: ONE THREE TIMES A DAY
     Route: 048

REACTIONS (9)
  - DELIRIUM TREMENS [None]
  - DIARRHOEA [None]
  - DYSKINESIA [None]
  - FALL [None]
  - INAPPROPRIATE SCHEDULE OF DRUG ADMINISTRATION [None]
  - LIGAMENT RUPTURE [None]
  - TENDON RUPTURE [None]
  - VOMITING [None]
  - WITHDRAWAL SYNDROME [None]
